FAERS Safety Report 5928611-2 (Version None)
Quarter: 2008Q3

REPORT INFORMATION
  Report Type: 
  Country: None (occurrence: None)
  Receive Date: 20080923
  Receipt Date: 20080226
  Transmission Date: 20090109
  Serious: Yes (Other)
  Sender: FDA-Public Use
  Company Number: WAES 0802USA06022

PATIENT
  Age: 81 Year
  Sex: Female
  Weight: 57.6068 kg

DRUGS (4)
  1. VYTORIN [Suspect]
     Indication: HYPERLIPIDAEMIA
     Dosage: 10-80 MG/DAILY/PO
     Route: 048
     Dates: start: 20070313, end: 20070710
  2. PRILOSEC [Concomitant]
  3. HYDROCHLOROTHIAZIDE (+) LISINOPR [Concomitant]
  4. OXYBUTYNIN CHLORIDE [Concomitant]

REACTIONS (1)
  - RHABDOMYOLYSIS [None]
